FAERS Safety Report 5199569-1 (Version None)
Quarter: 2007Q1

REPORT INFORMATION
  Report Type: 
  Country: None (occurrence: None)
  Receive Date: 20070103
  Receipt Date: 20070103
  Transmission Date: 20070707
  Serious: Yes (Hospitalization)
  Sender: FDA-Public Use
  Company Number: None

PATIENT
  Sex: Female
  Weight: 80.7403 kg

DRUGS (1)
  1. SIMVASTATIN [Suspect]
     Indication: BLOOD CHOLESTEROL
     Dosage: ONE TABLET AT BEDTIME DAILY PO
     Route: 048
     Dates: start: 20061116, end: 20061214

REACTIONS (5)
  - EAR PAIN [None]
  - FACIAL PALSY [None]
  - HEADACHE [None]
  - MYALGIA [None]
  - PAIN IN EXTREMITY [None]
